FAERS Safety Report 18455202 (Version 1)
Quarter: 2020Q4

REPORT INFORMATION
  Report Type: Spontaneous
  Country: US (occurrence: US)
  Receive Date: 20201102
  Receipt Date: 20201102
  Transmission Date: 20210114
  Serious: Yes (Hospitalization)
  Sender: FDA-Public Use
  Company Number: US-ABBVIE-20K-163-3628054-00

PATIENT
  Age: 37 Year
  Sex: Male

DRUGS (3)
  1. RIFAXIMIN. [Concomitant]
     Active Substance: RIFAXIMIN
     Indication: PANCREATIC ENZYME REPLACEMENT THERAPY
  2. CREON [Suspect]
     Active Substance: PANCRELIPASE AMYLASE\PANCRELIPASE LIPASE\PANCRELIPASE PROTEASE
     Indication: PANCREATIC ENZYME REPLACEMENT THERAPY
     Dosage: TUBE FEEDS
     Route: 065
  3. LACTULOSE. [Concomitant]
     Active Substance: LACTULOSE
     Indication: PANCREATIC ENZYME REPLACEMENT THERAPY

REACTIONS (2)
  - Treatment noncompliance [Unknown]
  - Hepatic encephalopathy [Unknown]
